FAERS Safety Report 18197396 (Version 1)
Quarter: 2020Q3

REPORT INFORMATION
  Report Type: Spontaneous
  Country: CN (occurrence: CN)
  Receive Date: 20200826
  Receipt Date: 20200826
  Transmission Date: 20201103
  Serious: Yes (Other)
  Sender: FDA-Public Use
  Company Number: CN-ROCHE-2665207

PATIENT
  Age: 32 Year
  Sex: Male

DRUGS (12)
  1. AVASTIN [Suspect]
     Active Substance: BEVACIZUMAB
     Indication: SURGERY
  2. CARBOPLATIN. [Concomitant]
     Active Substance: CARBOPLATIN
     Indication: LUNG ADENOCARCINOMA
     Dosage: DAY2
     Dates: start: 201801
  3. CISPLATIN. [Concomitant]
     Active Substance: CISPLATIN
     Indication: LUNG ADENOCARCINOMA
     Dosage: DAY2 TO DAY3
     Dates: start: 201709
  4. CISPLATIN. [Concomitant]
     Active Substance: CISPLATIN
     Indication: THYMOMA
     Dosage: DAY4
     Dates: start: 201709, end: 201712
  5. CARBOPLATIN. [Concomitant]
     Active Substance: CARBOPLATIN
     Indication: THYMOMA
  6. PEMETREXED. [Concomitant]
     Active Substance: PEMETREXED
     Indication: THYMOMA
  7. PEMETREXED. [Concomitant]
     Active Substance: PEMETREXED
     Indication: SURGERY
  8. CISPLATIN. [Concomitant]
     Active Substance: CISPLATIN
     Indication: SURGERY
  9. PEMETREXED. [Concomitant]
     Active Substance: PEMETREXED
     Indication: LUNG ADENOCARCINOMA
     Dosage: DAY1
     Dates: start: 201709
  10. AVASTIN [Suspect]
     Active Substance: BEVACIZUMAB
     Indication: LUNG ADENOCARCINOMA
     Dosage: DAY1
     Route: 065
     Dates: start: 201801
  11. AVASTIN [Suspect]
     Active Substance: BEVACIZUMAB
     Indication: THYMOMA
  12. CARBOPLATIN. [Concomitant]
     Active Substance: CARBOPLATIN
     Indication: SURGERY

REACTIONS (1)
  - Pulmonary radiation injury [Unknown]
